FAERS Safety Report 16394839 (Version 1)
Quarter: 2019Q3

REPORT INFORMATION
  Report Type: Spontaneous
  Country: US (occurrence: US)
  Receive Date: 20190604
  Receipt Date: 20190604
  Transmission Date: 20191004
  Serious: Yes (Hospitalization)
  Sender: FDA-Public Use
  Company Number: None

PATIENT
  Age: 77 Year
  Sex: Male
  Weight: 118.8 kg

DRUGS (12)
  1. BUMETANIDE 2MG [Concomitant]
  2. SIMVASTATIN 10MG [Concomitant]
     Active Substance: SIMVASTATIN
  3. ALLOPURINOL 100MG [Concomitant]
     Active Substance: ALLOPURINOL
  4. ALBUTEROL 90 MCG [Concomitant]
  5. MELOXICAM. [Suspect]
     Active Substance: MELOXICAM
  6. LISINOPRIL. [Concomitant]
     Active Substance: LISINOPRIL
  7. SPIRIVA 18MCG [Concomitant]
  8. ACETAZOLAMIDE 250MG [Concomitant]
  9. WARFARIN 5MG [Concomitant]
     Active Substance: WARFARIN
  10. DULERA 200MCG/5MG [Concomitant]
  11. METOPROLOL TARTRATE 50MG [Concomitant]
     Active Substance: METOPROLOL TARTRATE
  12. PERCOCET 5/325MG [Concomitant]

REACTIONS (1)
  - Cardiac failure congestive [None]

NARRATIVE: CASE EVENT DATE: 20190529
